FAERS Safety Report 5931936-8 (Version None)
Quarter: 2008Q4

REPORT INFORMATION
  Report Type: 
  Country: None (occurrence: None)
  Receive Date: 20081027
  Receipt Date: 20081016
  Transmission Date: 20090506
  Serious: Yes (Other)
  Sender: FDA-Public Use
  Company Number: PHHY2008JP15837

PATIENT
  Age: 23 Year
  Sex: Male

DRUGS (6)
  1. EXJADE [Suspect]
     Indication: IRON OVERLOAD
     Dosage: 1000 MG/DAILY
     Route: 048
     Dates: start: 20080705, end: 20080730
  2. EXJADE [Suspect]
     Indication: CONGENITAL APLASTIC ANAEMIA
     Dosage: 1000 MG/DAILY
     Route: 048
     Dates: start: 20080809, end: 20080823
  3. CYCLOSPORINE [Concomitant]
  4. RENIVACE [Concomitant]
     Dosage: 5 MG, UNK
     Route: 048
  5. CLARITIN [Concomitant]
     Dosage: 10 MG, UNK
     Route: 048
  6. PROTOPIC [Concomitant]
     Dosage: 0.03 %, UNK

REACTIONS (3)
  - DIARRHOEA [None]
  - GRAFT VERSUS HOST DISEASE [None]
  - RASH [None]
